FAERS Safety Report 5079338-3 (Version None)
Quarter: 2006Q3

REPORT INFORMATION
  Report Type: 
  Country: None (occurrence: None)
  Receive Date: 20060814
  Receipt Date: 20060307
  Transmission Date: 20061208
  Serious: Yes (Other)
  Sender: FDA-Public Use
  Company Number: PHNU2006DE01233

PATIENT
  Sex: Female
  Weight: 51 kg

DRUGS (1)
  1. ZOMETA [Suspect]
     Indication: METASTASES TO BONE
     Dosage: 4 MG, EVERY 4-6 WEEKS
     Dates: start: 20030701

REACTIONS (1)
  - OSTEONECROSIS [None]
